FAERS Safety Report 20839623 (Version 1)
Quarter: 2022Q2

REPORT INFORMATION
  Report Type: Spontaneous
  Country: US (occurrence: US)
  Receive Date: 20220517
  Receipt Date: 20220517
  Transmission Date: 20220721
  Serious: No
  Sender: FDA-Public Use
  Company Number: US-BRISTOL-MYERS SQUIBB COMPANY-2022-023696

PATIENT
  Age: 67 Year
  Sex: Female

DRUGS (1)
  1. REVLIMID [Suspect]
     Active Substance: LENALIDOMIDE
     Indication: Product used for unknown indication
     Dosage: 5 MILLIGRAM, OTHER
     Route: 048
     Dates: start: 20190205

REACTIONS (4)
  - Upper respiratory tract infection [Unknown]
  - Aphonia [Unknown]
  - Bacterial vaginosis [Unknown]
  - Productive cough [Unknown]

NARRATIVE: CASE EVENT DATE: 20220404
